FAERS Safety Report 4344199-4 (Version None)
Quarter: 2004Q2

REPORT INFORMATION
  Report Type: 
  Country: None (occurrence: None)
  Receive Date: 20040422
  Receipt Date: 20040130
  Transmission Date: 20050107
  Serious: Yes (Other)
  Sender: FDA-Public Use
  Company Number: ES-BRISTOL-MYERS SQUIBB COMPANY-12493169

PATIENT
  Age: 40 Year
  Sex: Male

DRUGS (5)
  1. ATAZANAVIR [Suspect]
     Indication: HIV INFECTION
     Dosage: DOSE INCREASED TO 400 MG
     Route: 048
     Dates: start: 20031211
  2. RITONAVIR [Suspect]
     Indication: HIV INFECTION
     Dosage: ^BABY DOSE^
     Dates: start: 20031211, end: 20040127
  3. TENOFOVIR [Suspect]
     Indication: HIV INFECTION
     Dates: start: 20031211, end: 20040127
  4. LAMIVUDINE [Concomitant]
     Dates: start: 20031211
  5. FORTOVASE [Concomitant]

REACTIONS (2)
  - HYPERCHOLESTEROLAEMIA [None]
  - HYPERTRIGLYCERIDAEMIA [None]
